FAERS Safety Report 11930870 (Version 1)
Quarter: 2016Q1

REPORT INFORMATION
  Report Type: Spontaneous
  Country: US (occurrence: US)
  Receive Date: 20160120
  Receipt Date: 20160120
  Transmission Date: 20160526
  Serious: No
  Sender: FDA-Public Use
  Company Number: US-INCYTE CORPORATION-2015IN002310

PATIENT
  Sex: Male
  Weight: 97.51 kg

DRUGS (10)
  1. LISINOPRIL. [Concomitant]
     Active Substance: LISINOPRIL
  2. ACIPHEX [Concomitant]
     Active Substance: RABEPRAZOLE SODIUM
  3. JAKAFI [Suspect]
     Active Substance: RUXOLITINIB
     Dosage: 5 MG, BID
     Route: 048
     Dates: start: 2015, end: 2015
  4. XANAX [Concomitant]
     Active Substance: ALPRAZOLAM
  5. METOPROLOL. [Concomitant]
     Active Substance: METOPROLOL
  6. JAKAFI [Suspect]
     Active Substance: RUXOLITINIB
     Indication: MYELOFIBROSIS
     Dosage: 10 MG, BID
     Route: 048
     Dates: start: 20141105
  7. ASPIRIN. [Concomitant]
     Active Substance: ASPIRIN
  8. JAKAFI [Suspect]
     Active Substance: RUXOLITINIB
     Dosage: 10 MG IN AM AND 5 MG IN PM
     Route: 048
     Dates: start: 2015
  9. CLARITIN [Concomitant]
     Active Substance: LORATADINE
  10. CELEXA [Concomitant]
     Active Substance: CITALOPRAM HYDROBROMIDE

REACTIONS (3)
  - Pain in extremity [Not Recovered/Not Resolved]
  - Muscle spasms [Not Recovered/Not Resolved]
  - Platelet count decreased [Unknown]
